FAERS Safety Report 6626387-7 (Version None)
Quarter: 2010Q1

REPORT INFORMATION
  Report Type: 
  Country: None (occurrence: None)
  Receive Date: 20100310
  Receipt Date: 20090807
  Transmission Date: 20100710
  Serious: No
  Sender: FDA-Public Use
  Company Number: US-ABBOTT-09P-163-0590190-00

PATIENT
  Sex: Female

DRUGS (4)
  1. LUPRON DEPOT [Suspect]
     Indication: UTERINE LEIOMYOMA
     Route: 050
     Dates: start: 20090210
  2. LUPRON DEPOT [Suspect]
     Indication: MENORRHAGIA
  3. AYGESTIN [Concomitant]
     Indication: UTERINE LEIOMYOMA
  4. AYGESTIN [Concomitant]
     Indication: MENORRHAGIA

REACTIONS (1)
  - DERMATITIS ALLERGIC [None]
